FAERS Safety Report 25716967 (Version 1)
Quarter: 2025Q3

REPORT INFORMATION
  Report Type: Spontaneous
  Country: US (occurrence: US)
  Receive Date: 20250822
  Receipt Date: 20250822
  Transmission Date: 20251021
  Serious: Yes (Death, Other)
  Sender: ADMA BIOLOGICS
  Company Number: US-ADMA BIOLOGICS INC.-US-2025ADM000253

PATIENT
  Age: 38 Year
  Sex: Female

DRUGS (12)
  1. HUMAN IMMUNOGLOBULIN G [Suspect]
     Active Substance: HUMAN IMMUNOGLOBULIN G
     Indication: Encephalitis
     Dosage: 0.4 GRAM PER KILOGRAM, QD FOR 8 DAYS
     Route: 042
     Dates: start: 202409, end: 2024
  2. METHYLPREDNISOLONE [Suspect]
     Active Substance: METHYLPREDNISOLONE
     Indication: Encephalitis
     Dosage: 1000 MG FOR 5 DAYS
     Route: 042
     Dates: start: 202409, end: 2024
  3. PREDNISONE [Suspect]
     Active Substance: PREDNISONE
     Indication: Encephalitis
     Route: 065
     Dates: start: 202409, end: 2024
  4. RITUXIMAB [Suspect]
     Active Substance: RITUXIMAB
     Indication: Encephalitis
     Route: 065
     Dates: start: 202409, end: 202409
  5. CEFTRIAXONE [Concomitant]
     Active Substance: CEFTRIAXONE
     Indication: Sepsis
     Route: 065
     Dates: start: 20240823
  6. DEXAMETHASONE [Concomitant]
     Active Substance: DEXAMETHASONE
     Indication: Encephalopathy
     Route: 065
     Dates: start: 20240823
  7. DEXAMETHASONE [Concomitant]
     Active Substance: DEXAMETHASONE
     Indication: Sepsis
  8. DEXAMETHASONE [Concomitant]
     Active Substance: DEXAMETHASONE
     Indication: Metabolic acidosis
  9. VENLAFAXINE [Concomitant]
     Active Substance: VENLAFAXINE HYDROCHLORIDE
     Indication: Encephalopathy
     Route: 065
     Dates: start: 20240823
  10. LEVETIRACETAM [Concomitant]
     Active Substance: LEVETIRACETAM
     Indication: Encephalopathy
     Route: 065
     Dates: start: 20240823, end: 202408
  11. VALPROATE [Concomitant]
     Active Substance: VALPROIC ACID
     Indication: Encephalopathy
     Route: 065
     Dates: start: 20240809, end: 202408
  12. VALPROATE [Concomitant]
     Active Substance: VALPROIC ACID
     Route: 065
     Dates: start: 20240823

REACTIONS (14)
  - Encephalitis autoimmune [Fatal]
  - Condition aggravated [Fatal]
  - Urinary tract infection enterococcal [Unknown]
  - Leukopenia [Unknown]
  - Thrombocytopenia [Unknown]
  - Bradycardia [Unknown]
  - Urinary tract infection fungal [Unknown]
  - Decubitus ulcer [Unknown]
  - Hypovolaemia [Unknown]
  - Dyskinesia [Unknown]
  - Decreased appetite [Unknown]
  - Hypotension [Unknown]
  - Nausea [Unknown]
  - Off label use [Unknown]

NARRATIVE: CASE EVENT DATE: 20240101
